FAERS Safety Report 10250010 (Version 1)
Quarter: 2014Q2

REPORT INFORMATION
  Report Type: Spontaneous
  Country: JP (occurrence: JP)
  Receive Date: 20140620
  Receipt Date: 20140620
  Transmission Date: 20141212
  Serious: Yes (Other)
  Sender: FDA-Public Use
  Company Number: JP-AMGEN-JPNSP2013075977

PATIENT
  Age: 81 Year
  Sex: Female

DRUGS (7)
  1. PRALIA [Suspect]
     Indication: OSTEOPOROSIS
     Dosage: 60 MG, Q6MO
     Route: 058
     Dates: start: 20130614
  2. AMARYL [Concomitant]
     Route: 065
  3. DEPAS [Concomitant]
     Route: 065
  4. MICAMLO [Concomitant]
     Route: 065
  5. LOCHOL                             /00638501/ [Concomitant]
     Route: 065
  6. EQUA [Concomitant]
     Route: 065
  7. ONEALFA [Concomitant]
     Route: 065

REACTIONS (1)
  - Osteonecrosis [Not Recovered/Not Resolved]
